FAERS Safety Report 21763149 (Version 1)
Quarter: 2022Q4

REPORT INFORMATION
  Report Type: Spontaneous
  Country: SE (occurrence: SE)
  Receive Date: 20221221
  Receipt Date: 20221221
  Transmission Date: 20230113
  Serious: Yes (Life-Threatening)
  Sender: FDA-Public Use
  Company Number: SE-GE HEALTHCARE-2022CSU009076

PATIENT
  Age: 84 Year
  Sex: Male
  Weight: 70 kg

DRUGS (2)
  1. VIZAMYL [Suspect]
     Active Substance: FLUTEMETAMOL F-18
     Indication: Diagnostic procedure
     Dosage: 183 MBQ, SINGLE
     Route: 042
     Dates: start: 20221209, end: 20221209
  2. VIZAMYL [Suspect]
     Active Substance: FLUTEMETAMOL F-18
     Indication: Dementia

REACTIONS (6)
  - Loss of consciousness [Recovered/Resolved]
  - Respiratory tract oedema [Recovered/Resolved]
  - Cyanosis [Recovered/Resolved]
  - Vomiting [Recovered/Resolved]
  - Dyspnoea [Recovered/Resolved]
  - Nausea [Recovered/Resolved]

NARRATIVE: CASE EVENT DATE: 20221209
